FAERS Safety Report 15556655 (Version 1)
Quarter: 2018Q4

REPORT INFORMATION
  Report Type: Spontaneous
  Country: FR (occurrence: FR)
  Receive Date: 20181026
  Receipt Date: 20181026
  Transmission Date: 20190205
  Serious: Yes (Disabling)
  Sender: FDA-Public Use
  Company Number: FR-TEVA-2018-FR-969380

PATIENT
  Age: 74 Year
  Sex: Male

DRUGS (6)
  1. ENDOXAN [Suspect]
     Active Substance: CYCLOPHOSPHAMIDE
     Indication: B-CELL LYMPHOMA
     Dosage: 1ST CURE ON 24/05 AND 4TH CURE ON 02/08
     Route: 042
     Dates: start: 20180524, end: 20180802
  2. VINCRISTINE (SULFATE DE) [Suspect]
     Active Substance: VINCRISTINE SULFATE
     Indication: B-CELL LYMPHOMA
     Dosage: 1ST CURE ON 24/05 AND 4TH CURE ON 02/08
     Route: 042
     Dates: start: 20180524, end: 20180802
  3. METHOTREXATE. [Suspect]
     Active Substance: METHOTREXATE
     Indication: B-CELL LYMPHOMA
     Dosage: NO INJECTION DURING THE 2ND TREATMENT
     Route: 037
     Dates: start: 20180524, end: 20180802
  4. RITUXIMAB ((MAMMIFERE/HAMSTER/CELLULES CHO)) [Suspect]
     Active Substance: RITUXIMAB
     Indication: B-CELL LYMPHOMA
     Dosage: 1ST CURE ON 24/05 AND 4TH CURE ON 02/08
     Route: 042
     Dates: start: 20180524, end: 20180802
  5. PREDNISONE. [Suspect]
     Active Substance: PREDNISONE
     Indication: B-CELL LYMPHOMA
     Dosage: 1ST CURE ON 24/05 AND 4TH CURE ON 02/08
     Route: 048
     Dates: start: 20180524, end: 20180802
  6. DOXORUBICIN [Suspect]
     Active Substance: DOXORUBICIN
     Indication: B-CELL LYMPHOMA
     Dosage: 1ST CURE ON 24/05 AND 4TH CURE ON 02/08
     Route: 042
     Dates: start: 20180524, end: 20180802

REACTIONS (1)
  - Neuropathy peripheral [Recovering/Resolving]

NARRATIVE: CASE EVENT DATE: 201807
